FAERS Safety Report 12648567 (Version 3)
Quarter: 2017Q1

REPORT INFORMATION
  Report Type: Spontaneous
  Country: US (occurrence: US)
  Receive Date: 20160812
  Receipt Date: 20170321
  Transmission Date: 20170428
  Serious: Yes (Other)
  Sender: FDA-Public Use
  Company Number: US-PFIZER INC-2016383354

PATIENT
  Age: 23 Year
  Sex: Male
  Weight: 165 kg

DRUGS (3)
  1. PROBIOTIC /06395501/ [Concomitant]
     Active Substance: BIFIDOBACTERIUM ANIMALIS SUBSP. LACTIS
     Indication: LYME DISEASE
     Dosage: 20 BILLION CFU
  2. SACCHAROMYCES BOULARDII [Concomitant]
     Active Substance: SACCHAROMYCES CEREVISIAE
     Indication: LYME DISEASE
     Dosage: 500 MG, UNK
     Dates: start: 2011
  3. DOXYCYCLINE HYCLATE. [Suspect]
     Active Substance: DOXYCYCLINE HYCLATE
     Indication: LYME DISEASE
     Dosage: 100 MG, 2X/DAY
     Route: 048
     Dates: start: 2011, end: 2011

REACTIONS (2)
  - Weight decreased [Unknown]
  - Jarisch-Herxheimer reaction [Recovered/Resolved]

NARRATIVE: CASE EVENT DATE: 2011
